FAERS Safety Report 7275790-3 (Version None)
Quarter: 2011Q1

REPORT INFORMATION
  Report Type: 
  Country: None (occurrence: None)
  Receive Date: 20110204
  Receipt Date: 20110128
  Transmission Date: 20110831
  Serious: Yes (Death, Hospitalization)
  Sender: FDA-Public Use
  Company Number: US-MERCK-1101USA03445

PATIENT
  Age: 64 Year
  Sex: Female
  Weight: 95 kg

DRUGS (4)
  1. DECADRON [Suspect]
     Indication: MULTIPLE MYELOMA
     Route: 048
     Dates: start: 20100731, end: 20100828
  2. DECADRON [Suspect]
     Route: 048
     Dates: start: 20101112, end: 20101115
  3. REVLIMID [Suspect]
     Indication: MULTIPLE MYELOMA
     Route: 065
     Dates: start: 20100815
  4. ALKERAN [Concomitant]
     Indication: MULTIPLE MYELOMA
     Route: 065
     Dates: start: 20101112, end: 20101115

REACTIONS (17)
  - INTERNATIONAL NORMALISED RATIO INCREASED [None]
  - OEDEMA PERIPHERAL [None]
  - ACIDOSIS [None]
  - BLOOD FIBRINOGEN DECREASED [None]
  - BLOOD CREATININE INCREASED [None]
  - WHITE BLOOD CELL COUNT DECREASED [None]
  - BLOOD ALBUMIN DECREASED [None]
  - PLATELET COUNT DECREASED [None]
  - BLOOD ALKALINE PHOSPHATASE INCREASED [None]
  - NEUTROPHIL COUNT DECREASED [None]
  - PROTHROMBIN TIME PROLONGED [None]
  - RENAL FAILURE ACUTE [None]
  - SEPSIS [None]
  - CONFUSIONAL STATE [None]
  - HAEMOGLOBIN DECREASED [None]
  - HYPOGLYCAEMIA [None]
  - HYPOTENSION [None]
